FAERS Safety Report 22323800 (Version 1)
Quarter: 2023Q2

REPORT INFORMATION
  Report Type: Spontaneous
  Country: IT (occurrence: IT)
  Receive Date: 20230516
  Receipt Date: 20230516
  Transmission Date: 20230721
  Serious: Yes (Other)
  Sender: FDA-Public Use
  Company Number: IT-MYLANLABS-2023M1049807

PATIENT
  Sex: Male

DRUGS (8)
  1. PREDNISONE [Suspect]
     Active Substance: PREDNISONE
     Indication: Autoinflammatory disease
     Dosage: UNK (ORAL HIGH DOSE GLUCOCORTICOID (GC) TREATMENT (25 TO 50 MG/DAY) HAD BEEN ADMINISTERED CONTINUOUS
     Route: 048
  2. PREDNISONE [Suspect]
     Active Substance: PREDNISONE
     Dosage: 7.5 MILLIGRAM, QD (TAPERED UP TO 7.5 MG/DAY)
     Route: 048
  3. PREDNISONE [Suspect]
     Active Substance: PREDNISONE
     Dosage: UNK, QD (TAPERED MORE)
     Route: 048
  4. AZATHIOPRINE [Concomitant]
     Active Substance: AZATHIOPRINE
     Indication: Autoinflammatory disease
     Dosage: UNK
     Route: 065
  5. MYCOPHENOLATE MOFETIL [Concomitant]
     Active Substance: MYCOPHENOLATE MOFETIL
     Indication: Autoinflammatory disease
     Dosage: UNK
     Route: 065
  6. HYDROXYCHLOROQUINE [Concomitant]
     Active Substance: HYDROXYCHLOROQUINE
     Indication: Autoinflammatory disease
     Dosage: UNK
     Route: 065
  7. METHOTREXATE [Concomitant]
     Active Substance: METHOTREXATE
     Indication: Autoinflammatory disease
     Dosage: UNK
     Route: 065
  8. ANAKINRA [Concomitant]
     Active Substance: ANAKINRA
     Indication: Autoinflammatory disease
     Dosage: 100 MILLIGRAM, QD
     Route: 058

REACTIONS (5)
  - Osteoporosis [Unknown]
  - Spinal fracture [Unknown]
  - Metabolic syndrome [Unknown]
  - Withdrawal syndrome [Unknown]
  - Adrenal insufficiency [Unknown]
